FAERS Safety Report 13570516 (Version 1)
Quarter: 2017Q2

REPORT INFORMATION
  Report Type: Report from Study
  Country: None (occurrence: US)
  Receive Date: 20170522
  Receipt Date: 20170522
  Transmission Date: 20170830
  Serious: Yes (Hospitalization)
  Sender: FDA-Public Use
  Company Number: US-ABBVIE-17K-163-1981362-00

PATIENT
  Sex: Female
  Weight: 39.04 kg

DRUGS (3)
  1. HUMIRA [Suspect]
     Active Substance: ADALIMUMAB
     Indication: CROHN^S DISEASE
     Dosage: DAY ONE
     Route: 058
     Dates: start: 20170411, end: 20170411
  2. HUMIRA [Suspect]
     Active Substance: ADALIMUMAB
     Dosage: DAY 15
     Route: 058
     Dates: start: 201704, end: 201704
  3. HUMIRA [Suspect]
     Active Substance: ADALIMUMAB
     Route: 058
     Dates: start: 2017

REACTIONS (9)
  - Depression [Unknown]
  - Oesophageal polyp [Unknown]
  - Diarrhoea [Unknown]
  - Diarrhoea haemorrhagic [Unknown]
  - Loss of personal independence in daily activities [Unknown]
  - Gastrooesophageal reflux disease [Unknown]
  - Anxiety [Unknown]
  - Crohn^s disease [Unknown]
  - Frequent bowel movements [Unknown]

NARRATIVE: CASE EVENT DATE: 2017
